FAERS Safety Report 15731317 (Version 2)
Quarter: 2019Q1

REPORT INFORMATION
  Report Type: Report from Study
  Country: US (occurrence: US)
  Receive Date: 20181217
  Receipt Date: 20190110
  Transmission Date: 20190417
  Serious: Yes (Death, Other)
  Sender: FDA-Public Use
  Company Number: US-TESAROUBC-US-2018TSO03864

PATIENT
  Age: 68 Year
  Sex: Female
  Weight: 43.84 kg

DRUGS (3)
  1. ZEJULA [Suspect]
     Active Substance: NIRAPARIB
     Dosage: UNK
     Dates: end: 20190103
  2. ZEJULA [Suspect]
     Active Substance: NIRAPARIB
     Dosage: 200 MG, QD
     Route: 048
     Dates: start: 20180725, end: 20180801
  3. ZEJULA [Suspect]
     Active Substance: NIRAPARIB
     Indication: OVARIAN CANCER
     Dosage: 300 MG, QD
     Route: 048
     Dates: start: 20180716

REACTIONS (14)
  - Death [Fatal]
  - Carbohydrate antigen 125 increased [Recovering/Resolving]
  - Decreased appetite [Unknown]
  - Bone marrow failure [Unknown]
  - Eastern Cooperative Oncology Group performance status worsened [Unknown]
  - Inflammation [Unknown]
  - Red blood cell count decreased [Not Recovered/Not Resolved]
  - Platelet count decreased [Not Recovered/Not Resolved]
  - White blood cell count decreased [Not Recovered/Not Resolved]
  - Back pain [Unknown]
  - Diarrhoea [Recovered/Resolved]
  - Neoplasm progression [Not Recovered/Not Resolved]
  - Hospice care [Unknown]
  - Blood count abnormal [Unknown]

NARRATIVE: CASE EVENT DATE: 201807
